FAERS Safety Report 7193038-5 (Version None)
Quarter: 2010Q4

REPORT INFORMATION
  Report Type: 
  Country: None (occurrence: None)
  Receive Date: 20101223
  Receipt Date: 20101217
  Transmission Date: 20110411
  Serious: Yes (Hospitalization)
  Sender: FDA-Public Use
  Company Number: FR-MERCK-1012FRA00106

PATIENT
  Age: 23 Year
  Sex: Female

DRUGS (11)
  1. COSOPT [Suspect]
     Route: 047
     Dates: start: 20101105, end: 20101118
  2. AZITHROMYCIN [Suspect]
     Route: 048
     Dates: start: 20101105, end: 20101118
  3. PYRIMETHAMINE [Suspect]
     Route: 048
     Dates: start: 20101105, end: 20101118
  4. ACETAZOLAMIDE [Suspect]
     Route: 048
     Dates: start: 20101105, end: 20101118
  5. RISEDRONATE SODIUM [Suspect]
     Route: 048
  6. POTASSIUM CHLORIDE [Suspect]
     Route: 048
     Dates: start: 20101105, end: 20101118
  7. LEUCOVORIN CALCIUM [Suspect]
     Route: 048
     Dates: start: 20101105, end: 20101115
  8. CALCIUM CARBONATE AND CHOLECALCIFEROL [Suspect]
     Route: 048
     Dates: start: 20101105, end: 20101118
  9. PREDNISONE [Concomitant]
     Route: 048
     Dates: start: 20101105, end: 20101124
  10. CYPROTERONE ACETATE AND ETHINYL ESTRADIOL [Concomitant]
     Indication: CONTRACEPTION
     Route: 048
  11. DOXYCYCLINE HYCLATE [Concomitant]
     Indication: ACNE
     Route: 048
     Dates: start: 20100920

REACTIONS (1)
  - DYSKINESIA [None]
